FAERS Safety Report 7326115-6 (Version None)
Quarter: 2011Q1

REPORT INFORMATION
  Report Type: 
  Country: None (occurrence: None)
  Receive Date: 20110302
  Receipt Date: 20110224
  Transmission Date: 20110831
  Serious: Yes (Hospitalization)
  Sender: FDA-Public Use
  Company Number: DE-ROCHE-760997

PATIENT
  Sex: Male
  Weight: 100 kg

DRUGS (4)
  1. PEGASYS [Suspect]
     Route: 058
     Dates: start: 20101217
  2. LYRICA [Concomitant]
     Indication: PAIN
     Route: 048
  3. RAMIPRIL [Concomitant]
     Route: 048
  4. COPEGUS [Suspect]
     Route: 048
     Dates: start: 20101217

REACTIONS (2)
  - NEOPLASM [None]
  - LARYNGITIS [None]
